FAERS Safety Report 25058791 (Version 1)
Quarter: 2025Q1

REPORT INFORMATION
  Report Type: Spontaneous
  Country: US (occurrence: US)
  Receive Date: 20250310
  Receipt Date: 20250310
  Transmission Date: 20250409
  Serious: No
  Sender: ROCHE
  Company Number: US-ROCHE-10000221872

PATIENT
  Sex: Female

DRUGS (9)
  1. XOLAIR PFS [Suspect]
     Active Substance: OMALIZUMAB
     Indication: Chronic obstructive pulmonary disease
     Route: 058
  2. XOLAIR PFS [Suspect]
     Active Substance: OMALIZUMAB
  3. Albuterol SU AER 108 [Concomitant]
  4. budesonide SUS 0.5MG [Concomitant]
  5. famotidine TAB 20 MG [Concomitant]
     Route: 048
  6. FUROSEMIDE [Concomitant]
     Active Substance: FUROSEMIDE
     Route: 048
  7. losartan pot tab 50mg [Concomitant]
  8. Metoprolol TB2 50 MG [Concomitant]
  9. pradaxa CAP 150MG [Concomitant]
     Route: 048

REACTIONS (2)
  - Bronchitis [Unknown]
  - Pneumonia [Unknown]
